FAERS Safety Report 14018505 (Version 1)
Quarter: 2017Q3

REPORT INFORMATION
  Report Type: Spontaneous
  Country: US (occurrence: US)
  Receive Date: 20170928
  Receipt Date: 20170928
  Transmission Date: 20171128
  Serious: Yes (Other)
  Sender: FDA-Public Use
  Company Number: None

PATIENT
  Age: 45 Year
  Sex: Female
  Weight: 85.5 kg

DRUGS (4)
  1. OMEPRAZOLE DR 20 MG [Suspect]
     Active Substance: OMEPRAZOLE
     Indication: GASTROOESOPHAGEAL REFLUX DISEASE
     Dosage: ?          QUANTITY:1 CAPSULE(S);?
     Route: 048
  2. GABAPENTIN. [Concomitant]
     Active Substance: GABAPENTIN
  3. TAMAZAPAM [Concomitant]
  4. CALCIUM PLUS VITAMIN D3 [Concomitant]

REACTIONS (4)
  - Hand fracture [None]
  - Fall [None]
  - Osteoporosis [None]
  - Fracture nonunion [None]

NARRATIVE: CASE EVENT DATE: 20170911
